FAERS Safety Report 4971826-0 (Version None)
Quarter: 2006Q2

REPORT INFORMATION
  Report Type: 
  Country: None (occurrence: None)
  Receive Date: 20060406
  Receipt Date: 20060317
  Transmission Date: 20061013
  Serious: Yes (Hospitalization, Other)
  Sender: FDA-Public Use
  Company Number: FR_051107466

PATIENT
  Age: 58 Year
  Sex: Female
  Weight: 56 kg

DRUGS (14)
  1. FORTEO [Suspect]
     Indication: OSTEOPOROSIS
     Dosage: 20 UG, DAILY (1/D), SUBCUTANEOUS
     Route: 058
     Dates: start: 20051102, end: 20051108
  2. PREVISCAN (FLUINDIONE) TABLET [Concomitant]
  3. LASIX [Concomitant]
  4. ALDACTONE [Concomitant]
  5. DIGOXIN [Concomitant]
  6. HYDROCORTISONE [Concomitant]
  7. DILTIAZEM HCL [Concomitant]
  8. FENOFIBRATE [Concomitant]
  9. MORPHINE SULFATE [Concomitant]
  10. CACIT D3 [Concomitant]
  11. ZOLPIDEM TARTRATE [Concomitant]
  12. VENTOLINE INHALATOR (SALBUTAMOL) [Concomitant]
  13. MOTILIUM (DOMPERIDONE MALEATE) [Concomitant]
  14. FORTEO PEN, 250MCG/ML (3ML) (FORTEO PEN 250MCG/ML (3ML)) PEN, DISPOSAB [Concomitant]

REACTIONS (3)
  - CARDIOACTIVE DRUG LEVEL INCREASED [None]
  - HYPERCALCIURIA [None]
  - INTERNATIONAL NORMALISED RATIO INCREASED [None]
